FAERS Safety Report 13983729 (Version 10)
Quarter: 2018Q1

REPORT INFORMATION
  Report Type: Report from Study
  Country: CA (occurrence: CA)
  Receive Date: 20170918
  Receipt Date: 20180318
  Transmission Date: 20180508
  Serious: Yes (Other)
  Sender: FDA-Public Use
  Company Number: PHHY2017CA056124

PATIENT
  Age: 73 Year
  Sex: Female

DRUGS (5)
  1. SANDOSTATIN LAR DEPOT [Suspect]
     Active Substance: OCTREOTIDE ACETATE
     Indication: CARCINOID TUMOUR
     Dosage: 30 MG, QMO (EVERY 4 WEEKS)
     Route: 030
     Dates: start: 20170311, end: 20170605
  2. SANDOSTATIN [Suspect]
     Active Substance: OCTREOTIDE ACETATE
     Indication: CARCINOID TUMOUR
     Dosage: ONCE/SINGLE
     Route: 058
     Dates: start: 20160306, end: 20160306
  3. SANDOSTATIN LAR DEPOT [Suspect]
     Active Substance: OCTREOTIDE ACETATE
     Dosage: 30 MG, BIW EVERY 2 WEEKS
     Route: 030
     Dates: start: 20170619
  4. CANDESARTAN. [Suspect]
     Active Substance: CANDESARTAN
     Indication: BLOOD PRESSURE INCREASED
     Dosage: UNK
     Route: 065
     Dates: start: 2017
  5. HYDROCHOROTHIAZIDE [Concomitant]
     Active Substance: HYDROCHLOROTHIAZIDE
     Indication: PRODUCT USED FOR UNKNOWN INDICATION
     Route: 048
     Dates: start: 2017

REACTIONS (11)
  - Blood pressure increased [Unknown]
  - Dyspnoea [Recovering/Resolving]
  - Cardiac septal defect [Unknown]
  - Confusional state [Unknown]
  - Oxygen saturation abnormal [Not Recovered/Not Resolved]
  - Contusion [Unknown]
  - Dyspnoea exertional [Unknown]
  - Blood pressure systolic increased [Unknown]
  - Fluid retention [Unknown]
  - Abdominal distension [Unknown]
  - Inappropriate schedule of drug administration [Unknown]

NARRATIVE: CASE EVENT DATE: 20170410
